FAERS Safety Report 6993593-1 (Version None)
Quarter: 2010Q3

REPORT INFORMATION
  Report Type: 
  Country: None (occurrence: None)
  Receive Date: 20100917
  Receipt Date: 20100909
  Transmission Date: 20110219
  Serious: Yes (Hospitalization, Other)
  Sender: FDA-Public Use
  Company Number: PHHY2010US60137

PATIENT
  Sex: Female

DRUGS (6)
  1. ZOMETA [Suspect]
  2. ADRIAMYCIN PFS [Concomitant]
  3. DOCETAXEL [Concomitant]
  4. AVASTIN [Concomitant]
  5. XELODA [Concomitant]
  6. RADIATION [Concomitant]

REACTIONS (3)
  - ALOPECIA [None]
  - MALAISE [None]
  - TUMOUR MARKER INCREASED [None]
